FAERS Safety Report 9977663 (Version 2)
Quarter: 2014Q1

REPORT INFORMATION
  Report Type: Report from Study
  Country: US (occurrence: US)
  Receive Date: 20140306
  Receipt Date: 20140306
  Transmission Date: 20141002
  Serious: No
  Sender: FDA-Public Use
  Company Number: US-ABBVIE-13P-163-1151643-00

PATIENT
  Age: 51 Year
  Sex: Female

DRUGS (10)
  1. HUMIRA [Suspect]
     Indication: COLITIS ULCERATIVE
     Dates: start: 20130809, end: 20130809
  2. HUMIRA [Suspect]
     Dates: start: 20130823, end: 20130823
  3. HUMIRA [Suspect]
     Dates: end: 20131004
  4. HUMIRA [Suspect]
  5. COLAZAL [Concomitant]
     Indication: PRODUCT USED FOR UNKNOWN INDICATION
  6. ATENOLOL [Concomitant]
     Indication: HYPERTENSION
     Dosage: 50MG DAILY
  7. TRICOR [Concomitant]
     Indication: BLOOD TRIGLYCERIDES INCREASED
     Dosage: 99MG DAILY
  8. PREDNISONE [Concomitant]
     Indication: PRODUCT USED FOR UNKNOWN INDICATION
     Dosage: 30MG DAILY
  9. LIALDA [Concomitant]
     Indication: PRODUCT USED FOR UNKNOWN INDICATION
  10. LIALDA [Concomitant]

REACTIONS (4)
  - Diarrhoea [Not Recovered/Not Resolved]
  - Haemorrhage [Recovering/Resolving]
  - Abdominal pain [Recovering/Resolving]
  - Drug ineffective [Not Recovered/Not Resolved]
